FAERS Safety Report 8320320-8 (Version None)
Quarter: 2012Q2

REPORT INFORMATION
  Report Type: 
  Country: None (occurrence: None)
  Receive Date: 20120430
  Receipt Date: 20120427
  Transmission Date: 20120825
  Serious: No
  Sender: FDA-Public Use
  Company Number: US-PFIZER INC-2012105055

PATIENT
  Sex: Male
  Weight: 100 kg

DRUGS (8)
  1. CHANTIX [Suspect]
     Dosage: UNK
     Route: 048
  2. VITAMIN D [Concomitant]
     Dosage: UNK
  3. CYMBALTA [Concomitant]
     Indication: ATRIAL FIBRILLATION
     Dosage: UNK
  4. ASPIRIN [Concomitant]
     Indication: CARDIAC DISORDER
     Dosage: UNK, DAILY
  5. CHANTIX [Suspect]
     Indication: SMOKING CESSATION THERAPY
     Dosage: UNK
     Route: 048
  6. CHANTIX [Suspect]
     Dosage: 1 MG, UNK
     Route: 048
  7. VITAMIN B COMPLEX CAP [Concomitant]
     Dosage: UNK
  8. HYDROCODONE [Concomitant]
     Dosage: ^10/325^ MG UP TO 5 TIMES A DAY AS NEEDED

REACTIONS (3)
  - DRUG INEFFECTIVE [None]
  - ABDOMINAL DISCOMFORT [None]
  - EXPIRED DRUG ADMINISTERED [None]
